FAERS Safety Report 5070553-1 (Version None)
Quarter: 2006Q3

REPORT INFORMATION
  Report Type: 
  Country: None (occurrence: None)
  Receive Date: 20060714
  Receipt Date: 20060420
  Transmission Date: 20061208
  Serious: No
  Sender: FDA-Public Use
  Company Number: 2006SP001777

PATIENT
  Age: 63 Year
  Sex: Female
  Weight: 86.1834 kg

DRUGS (7)
  1. LUNESTA [Suspect]
     Indication: INSOMNIA
     Dosage: 3 MG;ORAL
     Route: 048
     Dates: start: 20060404
  2. PRAVACHOL [Concomitant]
  3. ASACOL [Concomitant]
  4. HYDROXYZINE HYDROCHLORIDE [Concomitant]
  5. PANTOPRAZOLE SODIUM [Concomitant]
  6. CARTIA XT [Concomitant]
  7. BUPROPION HCL [Concomitant]

REACTIONS (2)
  - DYSGEUSIA [None]
  - MIDDLE INSOMNIA [None]
